FAERS Safety Report 10021094 (Version 2)
Quarter: 2014Q2

REPORT INFORMATION
  Report Type: Spontaneous
  Country: US (occurrence: US)
  Receive Date: 20140319
  Receipt Date: 20140430
  Transmission Date: 20141212
  Serious: No
  Sender: FDA-Public Use
  Company Number: US-PFIZER INC-2014074069

PATIENT
  Age: 59 Year
  Sex: Female

DRUGS (2)
  1. XALKORI [Suspect]
     Indication: LUNG NEOPLASM MALIGNANT
     Dosage: 250 MG, 2X/DAY (TAKE ONE CAPSULE TWICE DAILY)
     Dates: start: 201402
  2. XALKORI [Suspect]
     Dosage: 250 MG, UNK
     Dates: start: 20140311

REACTIONS (8)
  - Vitreous floaters [Unknown]
  - Hepatic enzyme increased [Unknown]
  - White blood cell count decreased [Unknown]
  - Vomiting [Unknown]
  - Throat irritation [Unknown]
  - Cough [Unknown]
  - Constipation [Unknown]
  - Vision blurred [Unknown]
